FAERS Safety Report 19733031 (Version 1)
Quarter: 2021Q3

REPORT INFORMATION
  Report Type: Spontaneous
  Country: US (occurrence: US)
  Receive Date: 20210823
  Receipt Date: 20210823
  Transmission Date: 20211014
  Serious: Yes (Hospitalization, Other)
  Sender: FDA-Public Use
  Company Number: US-HIKMA PHARMACEUTICALS USA INC.-US-H14001-21-03691

PATIENT
  Age: 13 Year
  Sex: Female

DRUGS (2)
  1. DOXORUBICIN [Suspect]
     Active Substance: DOXORUBICIN
     Indication: CHEMOTHERAPY
     Dosage: DAYS 1?2
     Route: 065
  2. IFOSFAMIDE. [Suspect]
     Active Substance: IFOSFAMIDE
     Indication: CHEMOTHERAPY
     Dosage: 3 G/M2 ON DAYS 1?3
     Route: 065

REACTIONS (7)
  - Dermatitis [Unknown]
  - Enanthema [Unknown]
  - Decreased appetite [Unknown]
  - Mucosal inflammation [Unknown]
  - Fatigue [Unknown]
  - Febrile neutropenia [Unknown]
  - Oesophagitis [Unknown]
